FAERS Safety Report 6743091-5 (Version None)
Quarter: 2010Q2

REPORT INFORMATION
  Report Type: 
  Country: None (occurrence: None)
  Receive Date: 20100527
  Receipt Date: 20100518
  Transmission Date: 20101027
  Serious: Yes (Other)
  Sender: FDA-Public Use
  Company Number: DE-JNJFOC-20100501397

PATIENT
  Sex: Male
  Weight: 77.3 kg

DRUGS (3)
  1. TOPAMAX [Suspect]
     Indication: EPILEPSY
     Route: 048
     Dates: start: 19980101
  2. CARBAMAZEPINE [Concomitant]
     Indication: EPILEPSY
     Route: 048
     Dates: start: 19980101
  3. LEVOTHYROXINE SODIUM [Concomitant]
     Indication: HYPOTHYROIDISM
     Route: 048

REACTIONS (3)
  - HYPERCALCIURIA [None]
  - NEPHROLITHIASIS [None]
  - RENAL FAILURE [None]
